FAERS Safety Report 22164714 (Version 1)
Quarter: 2023Q2

REPORT INFORMATION
  Report Type: Spontaneous
  Country: JP (occurrence: JP)
  Receive Date: 20230403
  Receipt Date: 20230403
  Transmission Date: 20230722
  Serious: Yes (Other)
  Sender: FDA-Public Use
  Company Number: JP-AMGEN-JPNSP2023055330

PATIENT

DRUGS (2)
  1. APREMILAST [Suspect]
     Active Substance: APREMILAST
     Indication: Psoriasis
     Dosage: UNK
     Route: 065
  2. APREMILAST [Suspect]
     Active Substance: APREMILAST
     Indication: Psoriatic arthropathy

REACTIONS (15)
  - Pneumonia bacterial [Unknown]
  - Pyoderma gangrenosum [Unknown]
  - Drug ineffective [Unknown]
  - Dry mouth [Unknown]
  - Malaise [Unknown]
  - Mental disorder [Unknown]
  - Dizziness [Unknown]
  - Abdominal pain upper [Unknown]
  - Urticaria [Unknown]
  - Diarrhoea [Unknown]
  - Nausea [Unknown]
  - Headache [Unknown]
  - Weight decreased [Unknown]
  - Decreased appetite [Unknown]
  - Vomiting [Unknown]
